FAERS Safety Report 23662398 (Version 5)
Quarter: 2024Q2

REPORT INFORMATION
  Report Type: Spontaneous
  Country: US (occurrence: US)
  Receive Date: 20240322
  Receipt Date: 20240506
  Transmission Date: 20240716
  Serious: No
  Sender: FDA-Public Use
  Company Number: US-PFIZER INC-PV202400035134

PATIENT
  Age: 51 Year
  Sex: Female
  Weight: 83.91 kg

DRUGS (2)
  1. GENOTROPIN [Suspect]
     Active Substance: SOMATROPIN
     Indication: Blood growth hormone abnormal
     Dosage: 0.2 MG, DAILY
  2. GENOTROPIN [Suspect]
     Active Substance: SOMATROPIN
     Dosage: AT NIGHT
     Route: 030
     Dates: start: 202309

REACTIONS (5)
  - Wrong technique in device usage process [Unknown]
  - Drug dose omission by device [Unknown]
  - Device leakage [Unknown]
  - Device mechanical issue [Unknown]
  - Off label use [Unknown]
